FAERS Safety Report 4811060-8 (Version None)
Quarter: 2005Q4

REPORT INFORMATION
  Report Type: 
  Country: None (occurrence: None)
  Receive Date: 20051027
  Receipt Date: 20051013
  Transmission Date: 20060501
  Serious: Yes (Other)
  Sender: FDA-Public Use
  Company Number: PT-BRISTOL-MYERS SQUIBB COMPANY-13145735

PATIENT
  Sex: Male

DRUGS (3)
  1. ATAZANAVIR [Suspect]
  2. DIDANOSINE [Concomitant]
  3. LAMIVUDINE [Concomitant]

REACTIONS (1)
  - PSORIASIS [None]
